FAERS Safety Report 6792891-4 (Version None)
Quarter: 2010Q2

REPORT INFORMATION
  Report Type: 
  Country: None (occurrence: None)
  Receive Date: 20100624
  Receipt Date: 20081126
  Transmission Date: 20101027
  Serious: Yes (Other)
  Sender: FDA-Public Use
  Company Number: US-PFIZER INC-2008090284

PATIENT
  Sex: Female
  Weight: 65.8 kg

DRUGS (4)
  1. GEODON [Suspect]
     Indication: BIPOLAR DISORDER
     Dates: start: 20081001, end: 20081001
  2. GEODON [Suspect]
     Indication: MANIA
  3. ALPRAZOLAM [Concomitant]
  4. AMBIEN [Concomitant]

REACTIONS (3)
  - HEADACHE [None]
  - INSOMNIA [None]
  - MANIA [None]
